FAERS Safety Report 7042332-7 (Version None)
Quarter: 2010Q4

REPORT INFORMATION
  Report Type: 
  Country: None (occurrence: None)
  Receive Date: 20101013
  Receipt Date: 20100301
  Transmission Date: 20110411
  Serious: No
  Sender: FDA-Public Use
  Company Number: US-ASTRAZENECA-2010SE08901

PATIENT
  Age: 770 Month
  Sex: Female
  Weight: 59.9 kg

DRUGS (5)
  1. SYMBICORT [Suspect]
     Indication: CHRONIC OBSTRUCTIVE PULMONARY DISEASE
     Dosage: 160/4.5 UG 2 PUFFS 2 TIMES DAY
     Route: 055
     Dates: start: 20081001
  2. LISINOPRIL [Concomitant]
  3. DIURETIC [Concomitant]
  4. LEVOTHYROXINE [Concomitant]
  5. PREDNISONE [Concomitant]

REACTIONS (3)
  - CHEST DISCOMFORT [None]
  - CHEST PAIN [None]
  - DRUG INEFFECTIVE [None]
